FAERS Safety Report 4828269-X (Version None)
Quarter: 2005Q4

REPORT INFORMATION
  Report Type: 
  Country: None (occurrence: None)
  Receive Date: 20051114
  Receipt Date: 20051114
  Transmission Date: 20060501
  Serious: Yes (Other)
  Sender: FDA-Public Use
  Company Number: None

PATIENT
  Age: 68 Year
  Sex: Male
  Weight: 89.8122 kg

DRUGS (3)
  1. UNASYN [Suspect]
     Indication: PYREXIA
     Dosage: 3 GM IV Q 6 H
     Route: 042
  2. SOLU-MEDROL [Concomitant]
  3. BENADRYL [Concomitant]

REACTIONS (2)
  - DRUG HYPERSENSITIVITY [None]
  - TREMOR [None]
